FAERS Safety Report 11536835 (Version 4)
Quarter: 2015Q4

REPORT INFORMATION
  Report Type: Spontaneous
  Country: US (occurrence: US)
  Receive Date: 20150922
  Receipt Date: 20151013
  Transmission Date: 20160304
  Serious: Yes (Hospitalization, Other)
  Sender: FDA-Public Use
  Company Number: US-PFIZER INC-2015314791

PATIENT
  Age: 83 Year
  Sex: Female
  Weight: 48 kg

DRUGS (2)
  1. LYRICA [Suspect]
     Active Substance: PREGABALIN
     Dosage: UNK
     Dates: start: 20150917
  2. LYRICA [Suspect]
     Active Substance: PREGABALIN
     Indication: PAIN
     Dosage: 100 MG, UNK
     Dates: start: 20150916, end: 20150916

REACTIONS (8)
  - Feeling abnormal [Not Recovered/Not Resolved]
  - Abasia [Unknown]
  - Malaise [Not Recovered/Not Resolved]
  - Feeding disorder [Unknown]
  - Drug intolerance [Unknown]
  - Headache [Not Recovered/Not Resolved]
  - Feeling drunk [Recovered/Resolved]
  - Blindness [Unknown]

NARRATIVE: CASE EVENT DATE: 20150916
